FAERS Safety Report 5746796-8 (Version None)
Quarter: 2008Q2

REPORT INFORMATION
  Report Type: 
  Country: None (occurrence: None)
  Receive Date: 20080522
  Receipt Date: 20080513
  Transmission Date: 20081010
  Serious: Yes (Other)
  Sender: FDA-Public Use
  Company Number: FR-PFIZER INC-2008041744

PATIENT
  Sex: Male

DRUGS (4)
  1. CHANTIX [Suspect]
     Indication: SMOKING CESSATION THERAPY
  2. EFFEXOR [Concomitant]
  3. PERINDOPRIL ERBUMINE [Concomitant]
  4. ALPRAZOLAM [Concomitant]

REACTIONS (1)
  - HAEMATOCHEZIA [None]
